FAERS Safety Report 10078668 (Version 1)
Quarter: 2014Q2

REPORT INFORMATION
  Report Type: Spontaneous
  Country: HU (occurrence: HU)
  Receive Date: 20140415
  Receipt Date: 20140415
  Transmission Date: 20141212
  Serious: Yes (Hospitalization, Disabling)
  Sender: FDA-Public Use
  Company Number: HU-PFIZER INC-2014104335

PATIENT
  Age: 79 Year
  Sex: Female

DRUGS (8)
  1. CORDARONE [Suspect]
     Indication: ARRHYTHMIA
     Dosage: 200 MG, 1X/DAY
     Route: 048
     Dates: start: 2012
  2. SYNCUMAR [Suspect]
     Indication: ATRIAL FIBRILLATION
     Dosage: 1 MG, ALTERNATE DAY
     Route: 048
     Dates: start: 2012
  3. SYNCUMAR [Suspect]
     Dosage: 1.5 MG, ALTERNATE DAY
     Route: 048
     Dates: start: 2012
  4. BISOPROLOL RATIOPHARM [Concomitant]
     Dosage: UNK
  5. CO-PERINEVA [Concomitant]
  6. DOXAZOSIN MESILATE [Concomitant]
  7. FUROSEMID-CHINOIN [Concomitant]
     Dosage: UNK
  8. PERINDOPRIL ACTAVIS [Concomitant]

REACTIONS (4)
  - Dyspnoea [Not Recovered/Not Resolved]
  - Asthenia [Not Recovered/Not Resolved]
  - Anaemia [Not Recovered/Not Resolved]
  - Hypothyroidism [Not Recovered/Not Resolved]
